FAERS Safety Report 10027797 (Version 1)
Quarter: 2014Q1

REPORT INFORMATION
  Report Type: Spontaneous
  Country: IT (occurrence: IT)
  Receive Date: 20140321
  Receipt Date: 20140321
  Transmission Date: 20141002
  Serious: Yes (Other)
  Sender: FDA-Public Use
  Company Number: IT-JNJFOC-20140310889

PATIENT
  Sex: Male

DRUGS (4)
  1. INFLIXIMAB, RECOMBINANT [Suspect]
     Indication: CROHN^S DISEASE
     Dosage: AT 0, 2, AND 6 WEEKS(INDUCTION), AND THEN MAINTENANCE THERAPY WITH 5 MG/KG EVERY 8 WEEKS.
     Route: 042
  2. CHLORPHENIRAMINE [Concomitant]
     Indication: PREMEDICATION
     Dosage: MAXIMUM DOSE 10 MG
     Route: 065
  3. HYDROCORTISONE [Concomitant]
     Indication: PREMEDICATION
     Dosage: MAXIMUM DOSE OF 300 MG
     Route: 065
  4. 6-MERCAPTOPURINE [Concomitant]
     Indication: CROHN^S DISEASE
     Route: 065

REACTIONS (1)
  - Chronic myeloid leukaemia [Unknown]
